FAERS Safety Report 18954267 (Version 1)
Quarter: 2021Q1

REPORT INFORMATION
  Report Type: Spontaneous
  Country: US (occurrence: US)
  Receive Date: 20210301
  Receipt Date: 20210301
  Transmission Date: 20210420
  Serious: Yes (Other)
  Sender: FDA-Public Use
  Company Number: US-PFIZER INC-2021200913

PATIENT
  Age: 43 Year
  Sex: Female

DRUGS (25)
  1. SOLU?MEDROL [Suspect]
     Active Substance: METHYLPREDNISOLONE SODIUM SUCCINATE
     Indication: DRY MOUTH
  2. BENADRYL [Suspect]
     Active Substance: DIPHENHYDRAMINE HYDROCHLORIDE
     Indication: RASH
     Dosage: UNK
  3. BENADRYL [Suspect]
     Active Substance: DIPHENHYDRAMINE HYDROCHLORIDE
     Indication: SWELLING FACE
  4. PEPCID [Suspect]
     Active Substance: FAMOTIDINE
     Indication: EYE SWELLING
  5. PREDNISONE. [Suspect]
     Active Substance: PREDNISONE
     Indication: EYE SWELLING
  6. PREDNISONE. [Suspect]
     Active Substance: PREDNISONE
     Indication: DRY MOUTH
  7. EPINEPHRINE. [Suspect]
     Active Substance: EPINEPHRINE
     Indication: SWELLING FACE
  8. SOLU?MEDROL [Suspect]
     Active Substance: METHYLPREDNISOLONE SODIUM SUCCINATE
     Indication: THROAT IRRITATION
  9. BENADRYL [Suspect]
     Active Substance: DIPHENHYDRAMINE HYDROCHLORIDE
     Indication: DRY MOUTH
  10. EPINEPHRINE. [Suspect]
     Active Substance: EPINEPHRINE
     Indication: THROAT IRRITATION
  11. EPINEPHRINE. [Suspect]
     Active Substance: EPINEPHRINE
     Indication: DRY MOUTH
  12. PEPCID [Suspect]
     Active Substance: FAMOTIDINE
     Indication: THROAT IRRITATION
  13. SOLU?MEDROL [Suspect]
     Active Substance: METHYLPREDNISOLONE SODIUM SUCCINATE
     Indication: SWELLING FACE
  14. PEPCID [Suspect]
     Active Substance: FAMOTIDINE
     Indication: RASH
     Dosage: UNK
  15. PEPCID [Suspect]
     Active Substance: FAMOTIDINE
     Indication: SWELLING FACE
  16. PEPCID [Suspect]
     Active Substance: FAMOTIDINE
     Indication: DRY MOUTH
  17. SOLU?MEDROL [Suspect]
     Active Substance: METHYLPREDNISOLONE SODIUM SUCCINATE
     Indication: EYE SWELLING
  18. SOLU?MEDROL [Suspect]
     Active Substance: METHYLPREDNISOLONE SODIUM SUCCINATE
     Indication: RASH
     Dosage: UNK
  19. BENADRYL [Suspect]
     Active Substance: DIPHENHYDRAMINE HYDROCHLORIDE
     Indication: THROAT IRRITATION
  20. PREDNISONE. [Suspect]
     Active Substance: PREDNISONE
     Indication: THROAT IRRITATION
  21. EPINEPHRINE. [Suspect]
     Active Substance: EPINEPHRINE
     Indication: RASH
     Dosage: UNK
     Route: 042
  22. EPINEPHRINE. [Suspect]
     Active Substance: EPINEPHRINE
     Indication: EYE SWELLING
  23. BENADRYL [Suspect]
     Active Substance: DIPHENHYDRAMINE HYDROCHLORIDE
     Indication: EYE SWELLING
  24. PREDNISONE. [Suspect]
     Active Substance: PREDNISONE
     Indication: RASH
     Dosage: UNK
  25. PREDNISONE. [Suspect]
     Active Substance: PREDNISONE
     Indication: SWELLING FACE

REACTIONS (1)
  - Drug ineffective [Unknown]

NARRATIVE: CASE EVENT DATE: 20210212
